FAERS Safety Report 17191627 (Version 3)
Quarter: 2020Q1

REPORT INFORMATION
  Report Type: Spontaneous
  Country: CH (occurrence: CH)
  Receive Date: 20191223
  Receipt Date: 20200106
  Transmission Date: 20200409
  Serious: Yes (Hospitalization, Other)
  Sender: FDA-Public Use
  Company Number: CH-PFIZER INC-2019546211

PATIENT
  Age: 90 Year
  Sex: Male

DRUGS (11)
  1. ASPIRIN CARDIO [Concomitant]
     Active Substance: ASPIRIN
     Dosage: UNK
  2. TRUSOPT [Concomitant]
     Active Substance: DORZOLAMIDE HYDROCHLORIDE
  3. LEXOTANIL [Concomitant]
     Active Substance: BROMAZEPAM
     Dosage: UNK, AS NEEDED (AS NECESSARY)
  4. ENBREL [Concomitant]
     Active Substance: ETANERCEPT
     Dates: start: 2015, end: 201603
  5. CIPROFLOXACIN. [Interacting]
     Active Substance: CIPROFLOXACIN
     Indication: URINARY TRACT INFECTION
     Dosage: 500 MG, 2X/DAY
     Dates: start: 20191110, end: 20191117
  6. PANTOPRAZOLE [Concomitant]
     Active Substance: PANTOPRAZOLE
     Dosage: UNK
     Dates: end: 20191121
  7. ULTIBRO BREEZHALER [Concomitant]
     Active Substance: GLYCOPYRRONIUM\INDACATEROL
  8. PREDNISONE. [Concomitant]
     Active Substance: PREDNISONE
     Dates: end: 201909
  9. METHOTREXATE. [Concomitant]
     Active Substance: METHOTREXATE
     Dates: end: 2015
  10. XELJANZ [Suspect]
     Active Substance: TOFACITINIB CITRATE
     Dosage: 5 MG, ALTERNATE DAY
     Dates: start: 201611, end: 20191121
  11. TRAVATAN [Concomitant]
     Active Substance: TRAVOPROST

REACTIONS (8)
  - Eye pain [Unknown]
  - Varicella zoster virus infection [Not Recovered/Not Resolved]
  - Meningitis viral [Not Recovered/Not Resolved]
  - Pyrexia [Unknown]
  - Herpes zoster [Unknown]
  - Drug interaction [Recovered/Resolved]
  - Skin plaque [Unknown]
  - Ear pain [Unknown]

NARRATIVE: CASE EVENT DATE: 201911
